FAERS Safety Report 6897301-4 (Version None)
Quarter: 2010Q3

REPORT INFORMATION
  Report Type: 
  Country: None (occurrence: None)
  Receive Date: 20100802
  Receipt Date: 20070615
  Transmission Date: 20110219
  Serious: No
  Sender: FDA-Public Use
  Company Number: US-PFIZER INC-2007017735

PATIENT
  Sex: Female

DRUGS (2)
  1. LYRICA [Suspect]
  2. ALCOHOL [Interacting]

REACTIONS (3)
  - DRUG INTERACTION [None]
  - SEDATION [None]
  - VISION BLURRED [None]
